FAERS Safety Report 4945718-7 (Version None)
Quarter: 2006Q1

REPORT INFORMATION
  Report Type: 
  Country: None (occurrence: None)
  Receive Date: 20060316
  Receipt Date: 20051104
  Transmission Date: 20060701
  Serious: Yes (Death, Hospitalization)
  Sender: FDA-Public Use
  Company Number: US-BRISTOL-MYERS SQUIBB COMPANY-13168489

PATIENT
  Age: 67 Year
  Sex: Male

DRUGS (6)
  1. CARBOPLATIN [Suspect]
     Dates: start: 20051020, end: 20051020
  2. PACLITAXEL [Suspect]
     Indication: NON-SMALL CELL LUNG CANCER
     Route: 042
     Dates: start: 20051020, end: 20051020
  3. RADIATION THERAPY [Concomitant]
     Indication: ADENOCARCINOMA
     Dates: start: 20051014, end: 20051028
  4. ATIVAN [Concomitant]
     Dates: start: 20051018, end: 20051219
  5. COMPAZINE [Concomitant]
     Dates: start: 20051018, end: 20051219
  6. OXYCODONE [Concomitant]
     Dates: start: 20051013, end: 20051219

REACTIONS (5)
  - EMPYEMA [None]
  - NAUSEA [None]
  - OESOPHAGEAL CANDIDIASIS [None]
  - RESPIRATORY ARREST [None]
  - VOMITING [None]
